FAERS Safety Report 26153605 (Version 1)
Quarter: 2025Q4

REPORT INFORMATION
  Report Type: Report from Study
  Country: US (occurrence: US)
  Receive Date: 20251214
  Receipt Date: 20251214
  Transmission Date: 20260118
  Serious: Yes (Other)
  Sender: MERCK KGAA
  Company Number: US-Merck Healthcare KGaA-2025059428

PATIENT
  Age: 81 Year
  Sex: Female

DRUGS (1)
  1. TEPMETKO [Suspect]
     Active Substance: TEPOTINIB HYDROCHLORIDE
     Indication: Lung neoplasm malignant
     Dosage: 225 MG 2 TABLETS ONCE A DAY
     Dates: start: 202307

REACTIONS (12)
  - Dementia [Unknown]
  - Malignant neoplasm progression [Unknown]
  - Pulmonary resection [Unknown]
  - Lymphadenectomy [Unknown]
  - Back pain [Not Recovered/Not Resolved]
  - Oedema [Recovering/Resolving]
  - Diarrhoea [Unknown]
  - Nausea [Unknown]
  - Iron deficiency anaemia [Not Recovered/Not Resolved]
  - Cellulitis [Unknown]
  - Mass [Unknown]
  - Nodule [Unknown]

NARRATIVE: CASE EVENT DATE: 20230724
